FAERS Safety Report 10727499 (Version 1)
Quarter: 2015Q1

REPORT INFORMATION
  Report Type: Spontaneous
  Country: US (occurrence: US)
  Receive Date: 20150121
  Receipt Date: 20150121
  Transmission Date: 20150721
  Serious: No
  Sender: FDA-Public Use
  Company Number: US-SHIRE-US201500442

PATIENT
  Sex: Male

DRUGS (1)
  1. VYVANSE [Suspect]
     Active Substance: LISDEXAMFETAMINE DIMESYLATE
     Indication: ATTENTION DEFICIT/HYPERACTIVITY DISORDER
     Dosage: 70 MG, 2X/DAY:BID
     Route: 048

REACTIONS (3)
  - Prescribed overdose [Not Recovered/Not Resolved]
  - Drug prescribing error [Not Recovered/Not Resolved]
  - No adverse event [Not Recovered/Not Resolved]
